FAERS Safety Report 4816242-7 (Version None)
Quarter: 2005Q4

REPORT INFORMATION
  Report Type: 
  Country: None (occurrence: None)
  Receive Date: 20051026
  Receipt Date: 20051017
  Transmission Date: 20060501
  Serious: Yes (Other)
  Sender: FDA-Public Use
  Company Number: GXKR2005GB01812

PATIENT
  Age: 53 Year
  Sex: Male
  Weight: 90.8 kg

DRUGS (16)
  1. METRONIDAZOLE [Suspect]
     Indication: DIARRHOEA
     Dosage: 400 MG, TID, ORAL
     Route: 048
     Dates: start: 20050924, end: 20050928
  2. ACYCLOVIR [Concomitant]
  3. CASPOFUNGIN (CASPOFUNGIN) [Concomitant]
  4. ALLOPURINOL [Concomitant]
  5. MEROPENEM (MEROPENEM) [Concomitant]
  6. ANUSOL  /NET/ (BISMUTH HYDROXIDE, BISMUTH SUBGALLATE, BORIC ACID, MYRO [Concomitant]
  7. TEICOPLANIN (TEICOPLANIN) [Concomitant]
  8. TAZOCIN (PIPERACILLIN SODIUM, TAZOBACTAM SODIUM) [Concomitant]
  9. GENTAMICIN [Concomitant]
  10. CHLORHEXIDINE (CHLORHEXIDINE) [Concomitant]
  11. NYSTATIN [Concomitant]
  12. LANSOPRAZOLE [Concomitant]
  13. RAMIPRIL [Concomitant]
  14. DOXAZOSIN (DOXAZOSIN) [Concomitant]
  15. BECLOMETHASONE DIPROPIONATE (BECLOMETASONE DIPROPIONATE) [Concomitant]
  16. SLOW-K [Concomitant]

REACTIONS (3)
  - ARTHRALGIA [None]
  - MYALGIA [None]
  - NEUTROPENIC SEPSIS [None]
